FAERS Safety Report 5556067-0 (Version None)
Quarter: 2007Q4

REPORT INFORMATION
  Report Type: 
  Country: None (occurrence: None)
  Receive Date: 20071211
  Receipt Date: 20071129
  Transmission Date: 20080405
  Serious: Yes (Other)
  Sender: FDA-Public Use
  Company Number: 2007BI011074

PATIENT
  Age: 43 Year
  Sex: Male

DRUGS (5)
  1. NATALIZUMAB [Suspect]
     Indication: MULTIPLE SCLEROSIS
     Dosage: 300 MG;QM;IV
     Route: 042
     Dates: start: 20061026, end: 20070301
  2. NATALIZUMAB [Suspect]
     Indication: MULTIPLE SCLEROSIS
     Dosage: 300 MG;QM;IV
     Route: 042
     Dates: start: 20070901, end: 20071001
  3. SPIRULINA [Concomitant]
  4. VITAMIN CAP [Concomitant]
  5. PREDNISONE [Concomitant]

REACTIONS (16)
  - ANGER [None]
  - CHILLS [None]
  - DEHYDRATION [None]
  - EPSTEIN-BARR VIRUS ANTIBODY POSITIVE [None]
  - FALL [None]
  - HEADACHE [None]
  - HEPATIC FIBROSIS [None]
  - HEPATITIS [None]
  - INFUSION RELATED REACTION [None]
  - NEPHROLITHIASIS [None]
  - PAIN [None]
  - PYREXIA [None]
  - SERUM FERRITIN INCREASED [None]
  - THERAPEUTIC RESPONSE DECREASED [None]
  - TREATMENT NONCOMPLIANCE [None]
  - URETERIC OBSTRUCTION [None]
